FAERS Safety Report 16312431 (Version 4)
Quarter: 2019Q3

REPORT INFORMATION
  Report Type: Report from Study
  Country: None (occurrence: US)
  Receive Date: 20190515
  Receipt Date: 20190711
  Transmission Date: 20191004
  Serious: Yes (Other)
  Sender: FDA-Public Use
  Company Number: US-ABBVIE-19K-163-2778968-00

PATIENT
  Age: 75 Year
  Sex: Female

DRUGS (3)
  1. VENCLEXTA [Suspect]
     Active Substance: VENETOCLAX
     Route: 048
     Dates: start: 201905
  2. VENCLEXTA [Suspect]
     Active Substance: VENETOCLAX
     Indication: CHRONIC LYMPHOCYTIC LEUKAEMIA
     Route: 048
     Dates: start: 20180708
  3. VENCLEXTA [Suspect]
     Active Substance: VENETOCLAX
     Route: 048
     Dates: start: 20180827

REACTIONS (12)
  - White blood cell count decreased [Recovered/Resolved]
  - Neutropenia [Unknown]
  - Pyrexia [Recovered/Resolved]
  - Fatigue [Recovered/Resolved]
  - Red blood cell count decreased [Recovered/Resolved]
  - Neutrophil count decreased [Not Recovered/Not Resolved]
  - Decreased appetite [Recovering/Resolving]
  - White blood cell count decreased [Recovered/Resolved]
  - Feeling abnormal [Recovering/Resolving]
  - Visual impairment [Recovering/Resolving]
  - Asthenia [Recovered/Resolved]
  - Platelet count decreased [Recovered/Resolved]

NARRATIVE: CASE EVENT DATE: 2019
